FAERS Safety Report 9406178 (Version 6)
Quarter: 2013Q3

REPORT INFORMATION
  Report Type: Report from Study
  Country: US (occurrence: US)
  Receive Date: 20130717
  Receipt Date: 20130924
  Transmission Date: 20140515
  Serious: No
  Sender: FDA-Public Use
  Company Number: US-VERTEX PHARMACEUTICALS INC-2013-008009

PATIENT
  Age: 50 Year
  Sex: Male
  Weight: 129 kg

DRUGS (3)
  1. VX-950 (TELAPREVIR) [Suspect]
     Indication: HEPATITIS C
     Dosage: 750 MG, TID
     Route: 048
     Dates: start: 20130712
  2. RIBAVIRIN [Suspect]
     Indication: HEPATITIS C
     Dosage: 600 MG, BID
     Route: 048
     Dates: start: 20130712
  3. PEGASYS [Suspect]
     Indication: HEPATITIS C
     Dosage: 180 ?G, QW
     Route: 058
     Dates: start: 20130712

REACTIONS (22)
  - Blood blister [Recovered/Resolved]
  - Paraesthesia [Unknown]
  - Hyperhidrosis [Not Recovered/Not Resolved]
  - Blood pressure increased [Recovered/Resolved]
  - Irritability [Recovered/Resolved]
  - Paraesthesia oral [Not Recovered/Not Resolved]
  - Scar [Unknown]
  - Headache [Recovered/Resolved]
  - Insomnia [Recovered/Resolved]
  - Anxiety [Recovered/Resolved]
  - Blood iron decreased [Unknown]
  - Intervertebral disc protrusion [Not Recovered/Not Resolved]
  - Tooth infection [Not Recovered/Not Resolved]
  - Hepatic pain [Not Recovered/Not Resolved]
  - Fatigue [Not Recovered/Not Resolved]
  - Local swelling [Recovered/Resolved]
  - Rash pruritic [Recovered/Resolved]
  - Pruritus [Recovered/Resolved]
  - Haemorrhoids [Not Recovered/Not Resolved]
  - Dysgeusia [Not Recovered/Not Resolved]
  - Anorectal discomfort [Not Recovered/Not Resolved]
  - Red blood cell count decreased [Unknown]
